FAERS Safety Report 11749334 (Version 1)
Quarter: 2015Q4

REPORT INFORMATION
  Report Type: Spontaneous
  Country: US (occurrence: None)
  Receive Date: 20151116
  Receipt Date: 20151116
  Transmission Date: 20160304
  Serious: No
  Sender: FDA-Public Use
  Company Number: None

PATIENT
  Sex: Female

DRUGS (1)
  1. ORENCIA [Suspect]
     Active Substance: ABATACEPT
     Route: 058
     Dates: start: 201509, end: 201510

REACTIONS (4)
  - Pain [None]
  - Throat tightness [None]
  - Skin ulcer [None]
  - Impaired healing [None]
